FAERS Safety Report 24373701 (Version 1)
Quarter: 2024Q3

REPORT INFORMATION
  Report Type: Spontaneous
  Country: US (occurrence: US)
  Receive Date: 20240927
  Receipt Date: 20240927
  Transmission Date: 20241017
  Serious: No
  Sender: VIVUS
  Company Number: US-VIVUS LLC-2023V1001320

PATIENT
  Age: 72 Year
  Sex: Female

DRUGS (1)
  1. QSYMIA [Suspect]
     Active Substance: PHENTERMINE HYDROCHLORIDE\TOPIRAMATE
     Indication: Product used for unknown indication
     Dosage: TAKE ONE CAPSULE BY MOUTH DAILY (MAX DAILY DOSE 1 PER DAY)
     Route: 048

REACTIONS (1)
  - Cognitive disorder [Not Recovered/Not Resolved]
